FAERS Safety Report 14684267 (Version 3)
Quarter: 2018Q2

REPORT INFORMATION
  Report Type: Spontaneous
  Country: IT (occurrence: IT)
  Receive Date: 20180327
  Receipt Date: 20180530
  Transmission Date: 20180711
  Serious: Yes (Hospitalization, Other)
  Sender: FDA-Public Use
  Company Number: PHHY2018IT053924

PATIENT
  Age: 87 Year
  Sex: Male

DRUGS (13)
  1. PANTOPRAZOLE [Concomitant]
     Active Substance: PANTOPRAZOLE
     Indication: PRODUCT USED FOR UNKNOWN INDICATION
     Dosage: 1 DF, QD BEFORE BEDTIME
     Route: 065
  2. COSENTYX [Suspect]
     Active Substance: SECUKINUMAB
     Indication: PRODUCT USED FOR UNKNOWN INDICATION
     Dosage: 300 MG, QMO
     Route: 065
  3. DIDROGYL [Concomitant]
     Active Substance: CALCIFEDIOL
     Indication: PRODUCT USED FOR UNKNOWN INDICATION
     Dosage: 10 DROPS AT BREAKFAST
     Route: 065
  4. CYCLOSPORIN [Suspect]
     Active Substance: CYCLOSPORINE
     Indication: PRODUCT USED FOR UNKNOWN INDICATION
     Dosage: 1 DF, BID 1 TABLET DURING BREAKFAST AND ONE TABLET DURING DINNER
     Route: 065
  5. FUROSEMIDE. [Concomitant]
     Active Substance: FUROSEMIDE
     Indication: PRODUCT USED FOR UNKNOWN INDICATION
     Dosage: 1 DF, QD (AT BREAKFAST (DURING THE EVEN DAYS)
     Route: 065
  6. ATORVASTATINA [Concomitant]
     Active Substance: ATORVASTATIN
     Indication: PRODUCT USED FOR UNKNOWN INDICATION
     Dosage: 1 DF, AT DINNER ON ALTERNATE DAYS
     Route: 065
  7. TAMSULOSIN [Concomitant]
     Active Substance: TAMSULOSIN
     Indication: PRODUCT USED FOR UNKNOWN INDICATION
     Dosage: 1 DF, QD (AT DINNER)
     Route: 065
  8. ALDACTONE [Concomitant]
     Active Substance: SPIRONOLACTONE
     Indication: PRODUCT USED FOR UNKNOWN INDICATION
     Dosage: 1 DF, QD (AT BREAKFAST)
     Route: 065
  9. CORDARONE [Concomitant]
     Active Substance: AMIODARONE HYDROCHLORIDE
     Indication: PRODUCT USED FOR UNKNOWN INDICATION
     Dosage: 1 DF,AT BREAKFAST (DURING THE EVEN DAYS)
     Route: 065
  10. LEVOTHYROXINE. [Concomitant]
     Active Substance: LEVOTHYROXINE
     Indication: PRODUCT USED FOR UNKNOWN INDICATION
     Dosage: 1 DF, QD ONE HOUR BEFORE BREAKFAST
     Route: 065
  11. PREDNISON [Concomitant]
     Active Substance: PREDNISONE
     Indication: PRODUCT USED FOR UNKNOWN INDICATION
     Dosage: 0.5 TABLET AT BREAKFAST TOMORROW, THEN0,25 TABLET UNTIL 28 MARCH
     Route: 065
  12. AVODART [Concomitant]
     Active Substance: DUTASTERIDE
     Indication: PRODUCT USED FOR UNKNOWN INDICATION
     Dosage: 1 DF, QD (AT LUNCH)
     Route: 065
  13. GLYCEROL\PARAFFIN [Concomitant]
     Active Substance: GLYCERIN\PARAFFIN
     Indication: PRODUCT USED FOR UNKNOWN INDICATION
     Dosage: APPLY IN THE MORNING AND EVENING
     Route: 065

REACTIONS (18)
  - Myocardial ischaemia [Unknown]
  - Skin exfoliation [Unknown]
  - Autoinflammatory disease [Unknown]
  - Cardiac disorder [Unknown]
  - Somatic dysfunction [Unknown]
  - Renal failure [Unknown]
  - Hyperparathyroidism [Unknown]
  - Pruritus [Unknown]
  - Mediastinal disorder [Unknown]
  - Psoriasis [Unknown]
  - Benign prostatic hyperplasia [Unknown]
  - Skin striae [Unknown]
  - Blood creatinine increased [Unknown]
  - Diaphragmatic disorder [Unknown]
  - Dermatitis exfoliative generalised [Unknown]
  - Vitamin D deficiency [Unknown]
  - Pleural thickening [Unknown]
  - Interstitial lung disease [Unknown]

NARRATIVE: CASE EVENT DATE: 20180310
